FAERS Safety Report 9583630 (Version 2)
Quarter: 2014Q1

REPORT INFORMATION
  Report Type: Spontaneous
  Country: US (occurrence: US)
  Receive Date: 20131002
  Receipt Date: 20140303
  Transmission Date: 20141002
  Serious: Yes (Other)
  Sender: FDA-Public Use
  Company Number: US-AMGEN-USASP2013048523

PATIENT
  Age: 47 Year
  Sex: Male

DRUGS (2)
  1. ENBREL [Suspect]
     Indication: PSORIASIS
     Dosage: 25 MG, QWK
     Route: 065
     Dates: start: 20120904, end: 20131211
  2. ENBREL [Suspect]
     Dosage: UNK
     Route: 065

REACTIONS (6)
  - Staphylococcal infection [Recovered/Resolved]
  - Psoriasis [Not Recovered/Not Resolved]
  - Arthropod bite [Recovered/Resolved]
  - Skin atrophy [Not Recovered/Not Resolved]
  - Contusion [Not Recovered/Not Resolved]
  - Erythema [Not Recovered/Not Resolved]
